FAERS Safety Report 8555410-8 (Version None)
Quarter: 2012Q3

REPORT INFORMATION
  Report Type: 
  Country: None (occurrence: None)
  Receive Date: 20120731
  Receipt Date: 20110726
  Transmission Date: 20120928
  Serious: No
  Sender: FDA-Public Use
  Company Number: US-ASTRAZENECA-2011SE42720

PATIENT
  Age: 51 Year
  Sex: Female

DRUGS (5)
  1. SEROQUEL [Suspect]
     Route: 048
     Dates: start: 20000101
  2. LAMICTAL [Concomitant]
  3. SEROQUEL [Suspect]
     Dosage: 200 MG AT NIGHT AND 50 MG THREE TIMES A DAY
     Route: 048
  4. SEROQUEL [Suspect]
     Indication: BIPOLAR DISORDER
     Dosage: 50 MG IN MORNING, 100 MG IN AFTERNOON AND 200 MG AT NIGHT
     Route: 048
     Dates: start: 20000101
  5. EFFEXOR [Concomitant]

REACTIONS (4)
  - DRUG DOSE OMISSION [None]
  - WRONG TECHNIQUE IN DRUG USAGE PROCESS [None]
  - AGGRESSION [None]
  - DEPRESSION [None]
